FAERS Safety Report 7334920-5 (Version None)
Quarter: 2011Q1

REPORT INFORMATION
  Report Type: 
  Country: None (occurrence: None)
  Receive Date: 20110228
  Receipt Date: 20110120
  Transmission Date: 20110831
  Serious: Yes (Disabling)
  Sender: FDA-Public Use
  Company Number: WAES 1101USA02269

PATIENT

DRUGS (1)
  1. INJ IVEMEND UNK [Suspect]
     Indication: PROPHYLAXIS
     Dosage: 50 MG/IV
     Route: 042

REACTIONS (2)
  - UNDERDOSE [None]
  - INFUSION SITE PAIN [None]
